FAERS Safety Report 5482462-4 (Version None)
Quarter: 2007Q4

REPORT INFORMATION
  Report Type: 
  Country: None (occurrence: None)
  Receive Date: 20071011
  Receipt Date: 20071003
  Transmission Date: 20080405
  Serious: Yes (Other)
  Sender: FDA-Public Use
  Company Number: US-ASTRAZENECA-2006UW08975

PATIENT
  Age: 48 Year
  Sex: Female
  Weight: 72.6 kg

DRUGS (3)
  1. ARIMIDEX [Suspect]
     Indication: BREAST CANCER STAGE III
     Route: 048
     Dates: start: 20051201, end: 20060101
  2. ARIMIDEX [Suspect]
     Indication: RADIOTHERAPY
     Route: 048
     Dates: start: 20051201, end: 20060101
  3. ARIMIDEX [Suspect]
     Indication: CHEMOTHERAPY
     Route: 048
     Dates: start: 20051201, end: 20060101

REACTIONS (6)
  - HOT FLUSH [None]
  - HYPOAESTHESIA [None]
  - LIMB INJURY [None]
  - PAIN [None]
  - PAIN IN EXTREMITY [None]
  - PARALYSIS [None]
